FAERS Safety Report 5253219-4 (Version None)
Quarter: 2007Q1

REPORT INFORMATION
  Report Type: 
  Country: None (occurrence: None)
  Receive Date: 20070301
  Receipt Date: 20070222
  Transmission Date: 20070707
  Serious: Yes (Hospitalization)
  Sender: FDA-Public Use
  Company Number: 2007PK00497

PATIENT
  Age: 66 Year
  Sex: Male

DRUGS (7)
  1. METOPROLOL SUCCINATE [Suspect]
     Route: 048
     Dates: end: 20070101
  2. AMARYL [Suspect]
     Route: 048
     Dates: end: 20070119
  3. GLUCOPHAGE [Suspect]
     Route: 048
     Dates: end: 20070119
  4. ACTOS [Suspect]
     Route: 048
     Dates: end: 20070119
  5. DIGOXIN STREULI [Concomitant]
     Route: 048
  6. ALLOPURINOL [Concomitant]
     Route: 048
  7. HALDOL [Concomitant]
     Route: 048

REACTIONS (1)
  - HYPOGLYCAEMIA [None]
